FAERS Safety Report 9507615 (Version 1)
Quarter: 2013Q1

REPORT INFORMATION
  Report Type: Spontaneous
  Country: US (occurrence: None)
  Receive Date: 20130305
  Receipt Date: 20130305
  Transmission Date: 20140127
  Serious: Yes (Other)
  Sender: FDA-Public Use
  Company Number: 163-21880-12111321

PATIENT
  Age: 72 Year
  Sex: Female
  Weight: 77.11 kg

DRUGS (9)
  1. REVLIMID [Suspect]
     Indication: PLASMA CELL MYELOMA
     Route: 048
     Dates: start: 20120406, end: 20121019
  2. ACYCLOVIR (CICLOVIR) [Concomitant]
  3. ARMOUR THYROID (TTHYROID) [Concomitant]
  4. ATENOLOL (ATENOLOL) [Concomitant]
  5. BUSPIRONE HCL (VUSPIRONE HYDROCHLORIDE) [Concomitant]
  6. CALCIUM CARBONATE (CALCIUM CARBONATE) [Concomitant]
  7. GABAPENTIN (GABAPENTIN) [Concomitant]
  8. POTASSIUM (POTASSIUM) [Concomitant]
  9. ZOMETA (ZOLEDRONIC ACID) [Concomitant]

REACTIONS (1)
  - Pneumonia [None]
